FAERS Safety Report 6893237-3 (Version None)
Quarter: 2010Q3

REPORT INFORMATION
  Report Type: 
  Country: None (occurrence: None)
  Receive Date: 20100731
  Receipt Date: 20090712
  Transmission Date: 20110219
  Serious: No
  Sender: FDA-Public Use
  Company Number: US-PFIZER INC-2009220145

PATIENT

DRUGS (2)
  1. AMLODIPINE BESYLATE [Suspect]
  2. NORVASC [Concomitant]
     Dosage: 10 MG, 1X/DAY

REACTIONS (1)
  - UNEVALUABLE EVENT [None]
